FAERS Safety Report 6275711-6 (Version None)
Quarter: 2009Q3

REPORT INFORMATION
  Report Type: 
  Country: None (occurrence: None)
  Receive Date: 20090721
  Receipt Date: 20090710
  Transmission Date: 20100115
  Serious: Yes (Hospitalization)
  Sender: FDA-Public Use
  Company Number: PHHY2009JP28618

PATIENT
  Sex: Male

DRUGS (2)
  1. GLEEVEC [Suspect]
     Indication: CHRONIC MYELOID LEUKAEMIA
     Dosage: 400 MG/DAY
     Route: 048
     Dates: start: 20020101, end: 20090703
  2. ANTIDEPRESSANTS [Concomitant]
     Indication: DEPRESSION

REACTIONS (2)
  - DYSPNOEA [None]
  - MYOCARDITIS [None]
